FAERS Safety Report 6710476-2 (Version None)
Quarter: 2010Q2

REPORT INFORMATION
  Report Type: 
  Country: None (occurrence: None)
  Receive Date: 20100504
  Receipt Date: 20100426
  Transmission Date: 20101027
  Serious: Yes (Hospitalization)
  Sender: FDA-Public Use
  Company Number: PT-PFIZER INC-2010052708

PATIENT
  Age: 41 Year
  Sex: Male

DRUGS (3)
  1. AZITHROMYCIN [Suspect]
     Indication: INTERSTITIAL LUNG DISEASE
     Dosage: 500 MG, 1X/DAY
     Route: 042
  2. TRIMETHOPRIM + SULFAMETHOXAZOLE [Interacting]
     Indication: INTERSTITIAL LUNG DISEASE
  3. CEFOTAXIME [Concomitant]
     Indication: INTERSTITIAL LUNG DISEASE

REACTIONS (3)
  - BRADYCARDIA [None]
  - DRUG INTERACTION [None]
  - ELECTROCARDIOGRAM QT PROLONGED [None]
